FAERS Safety Report 8164290-4 (Version None)
Quarter: 2012Q1

REPORT INFORMATION
  Report Type: 
  Country: None (occurrence: None)
  Receive Date: 20120224
  Receipt Date: 20120223
  Transmission Date: 20120608
  Serious: No
  Sender: FDA-Public Use
  Company Number: US-PFIZER INC-2012048745

PATIENT
  Sex: Male

DRUGS (2)
  1. LIBRIUM [Concomitant]
     Indication: ANXIETY
     Dosage: UNK
  2. XANAX [Suspect]
     Indication: ANXIETY
     Dosage: 1 MG, 3X/DAY
     Route: 048
     Dates: end: 20120107

REACTIONS (1)
  - DRUG SCREEN POSITIVE [None]
